FAERS Safety Report 6582874-1 (Version None)
Quarter: 2010Q1

REPORT INFORMATION
  Report Type: 
  Country: None (occurrence: None)
  Receive Date: 20100216
  Receipt Date: 20100201
  Transmission Date: 20100710
  Serious: Yes (Death)
  Sender: FDA-Public Use
  Company Number: US-JNJCH-2010003969

PATIENT
  Age: 46 Year
  Sex: Female

DRUGS (3)
  1. PSEUDOEPHEDRINE [Suspect]
     Indication: DRUG USE FOR UNKNOWN INDICATION
     Dosage: TEXT:UNKNOWN
     Route: 065
  2. ESCITALOPRAM [Suspect]
     Indication: DRUG USE FOR UNKNOWN INDICATION
     Dosage: TEXT:UNKNOWN
     Route: 065
  3. FENTANYL-100 [Concomitant]
     Indication: BACK PAIN
     Dosage: TEXT:UNKNOWN
     Route: 062

REACTIONS (2)
  - DELIRIUM [None]
  - DRUG TOXICITY [None]
